FAERS Safety Report 21351672 (Version 1)
Quarter: 2022Q3

REPORT INFORMATION
  Report Type: Spontaneous
  Country: US (occurrence: US)
  Receive Date: 20220919
  Receipt Date: 20220919
  Transmission Date: 20221027
  Serious: Yes (Other)
  Sender: FDA-Public Use
  Company Number: US-PAIPHARMA-2022-US-022212

PATIENT
  Age: 8 Week
  Sex: 0

DRUGS (1)
  1. DOXEPIN HYDROCHLORIDE [Suspect]
     Active Substance: DOXEPIN HYDROCHLORIDE
     Indication: Product used for unknown indication
     Route: 048

REACTIONS (5)
  - Respiratory rate decreased [Recovered/Resolved]
  - Somnolence neonatal [Recovered/Resolved]
  - Hypothermia neonatal [Recovered/Resolved]
  - Pallor [Recovered/Resolved]
  - Exposure via breast milk [Recovered/Resolved]
